FAERS Safety Report 14416361 (Version 1)
Quarter: 2018Q1

REPORT INFORMATION
  Report Type: Spontaneous
  Country: US (occurrence: US)
  Receive Date: 20180122
  Receipt Date: 20180122
  Transmission Date: 20180509
  Serious: No
  Sender: FDA-Public Use
  Company Number: US-ENDO PHARMACEUTICALS INC-2017-003867

PATIENT
  Sex: Female
  Weight: 46.26 kg

DRUGS (3)
  1. OPANA ER [Suspect]
     Active Substance: OXYMORPHONE HYDROCHLORIDE
     Indication: BACK PAIN
     Dosage: UNK UNKNOWN, UNKNOWN
     Route: 065
     Dates: start: 2013
  2. OXYMORPHONE 5MG [Suspect]
     Active Substance: OXYMORPHONE
     Indication: BACK PAIN
     Dosage: 5 MG, TWO TABLETS UP TO THREE TIMES A DAY
     Route: 048
     Dates: start: 2017, end: 2017
  3. OPANA [Concomitant]
     Active Substance: OXYMORPHONE HYDROCHLORIDE
     Indication: BACK PAIN
     Dosage: 10 MG, UP TO THREE TIMES A DAY AS NEEDED
     Route: 048
     Dates: start: 2017

REACTIONS (5)
  - Drug hypersensitivity [None]
  - Pruritus [Recovered/Resolved]
  - Haematochezia [None]
  - Faeces discoloured [Recovered/Resolved]
  - Diarrhoea [Recovered/Resolved]
